FAERS Safety Report 5281827-3 (Version None)
Quarter: 2007Q1

REPORT INFORMATION
  Report Type: 
  Country: None (occurrence: None)
  Receive Date: 20070330
  Receipt Date: 20070319
  Transmission Date: 20070707
  Serious: Yes (Hospitalization)
  Sender: FDA-Public Use
  Company Number: FR-MERCK-0703FRA00070

PATIENT
  Age: 33 Year
  Sex: Female

DRUGS (7)
  1. STROMECTOL [Suspect]
     Indication: ACARODERMATITIS
     Route: 048
     Dates: start: 20070112, end: 20070112
  2. SULFAMETHOXAZOLE AND TRIMETHOPRIM [Suspect]
     Indication: PNEUMONIA BACTERIAL
     Route: 048
     Dates: start: 20070112, end: 20070115
  3. BUPRENORPHINE HYDROCHLORIDE [Concomitant]
     Indication: DRUG DEPENDENCE
     Route: 048
  4. ENOXAPARIN SODIUM [Concomitant]
     Indication: THROMBOSIS PROPHYLAXIS
     Route: 058
     Dates: start: 20070112
  5. AMOXICILLIN AND CLAVULANATE POTASSIUM [Concomitant]
     Indication: PNEUMONIA BACTERIAL
     Route: 048
     Dates: start: 20070110
  6. ROXITHROMYCIN [Concomitant]
     Indication: PNEUMONIA BACTERIAL
     Route: 048
     Dates: start: 20070110
  7. ACETAMINOPHEN [Concomitant]
     Route: 048
     Dates: start: 20070110

REACTIONS (1)
  - AGRANULOCYTOSIS [None]
